FAERS Safety Report 9589396 (Version 1)
Quarter: 2013Q4

REPORT INFORMATION
  Report Type: Spontaneous
  Country: US (occurrence: US)
  Receive Date: 20131003
  Receipt Date: 20131003
  Transmission Date: 20140711
  Serious: No
  Sender: FDA-Public Use
  Company Number: US-AMGEN-USASP2012069845

PATIENT
  Age: 64 Year
  Sex: Female
  Weight: 90.7 kg

DRUGS (3)
  1. ENBREL [Suspect]
     Indication: RHEUMATOID ARTHRITIS
     Dosage: 50 MG, QWK
     Route: 058
  2. ADVIL                              /00109201/ [Concomitant]
     Dosage: 200 MG, UNK
  3. TUMS                               /07357001/ [Concomitant]
     Dosage: 500 MG, UNK

REACTIONS (2)
  - Injection site reaction [Unknown]
  - Injection site haemorrhage [Unknown]
